FAERS Safety Report 17942473 (Version 1)
Quarter: 2020Q2

REPORT INFORMATION
  Report Type: Spontaneous
  Country: JP (occurrence: JP)
  Receive Date: 20200624
  Receipt Date: 20200624
  Transmission Date: 20200714
  Serious: Yes (Other)
  Sender: FDA-Public Use
  Company Number: JP-BRISTOL-MYERS SQUIBB COMPANY-BMS-2020-048284

PATIENT
  Age: 11 Year
  Sex: Male

DRUGS (2)
  1. KENACORT-A [Suspect]
     Active Substance: TRIAMCINOLONE ACETONIDE
     Indication: NODULE
     Dosage: 4 MILLIGRAM
     Route: 061
  2. KENACORT-A [Suspect]
     Active Substance: TRIAMCINOLONE ACETONIDE
     Indication: PRODUCT USED FOR UNKNOWN INDICATION
     Dosage: 8 MILLIGRAM
     Route: 061

REACTIONS (1)
  - Angiolymphoid hyperplasia with eosinophilia [Unknown]

NARRATIVE: CASE EVENT DATE: 20200616
